FAERS Safety Report 15769577 (Version 1)
Quarter: 2018Q4

REPORT INFORMATION
  Report Type: Spontaneous
  Country: GB (occurrence: GB)
  Receive Date: 20181228
  Receipt Date: 20181228
  Transmission Date: 20190205
  Serious: Yes (Disabling, Other)
  Sender: FDA-Public Use
  Company Number: GB-ACCORD-098577

PATIENT
  Age: 13 Year
  Sex: Female
  Weight: 50.4 kg

DRUGS (7)
  1. TOPIRAMATE. [Concomitant]
     Active Substance: TOPIRAMATE
     Indication: TEMPORAL LOBE EPILEPSY
     Dosage: ONGOING
     Route: 048
     Dates: start: 20171121
  2. QUETIAPINE. [Suspect]
     Active Substance: QUETIAPINE
     Indication: PSYCHOTIC SYMPTOM
     Route: 048
     Dates: end: 20180208
  3. MELATONIN [Concomitant]
     Active Substance: MELATONIN
     Indication: POOR QUALITY SLEEP
     Dosage: ONGOING. AT NIGHT.
     Route: 048
     Dates: start: 20171116
  4. DOCUSATE/DOCUSATE CALCIUM/DOCUSATE POTASSIUM/DOCUSATE SODIUM [Concomitant]
     Indication: CONSTIPATION
     Dosage: ONGOING
     Route: 048
     Dates: start: 20170602
  5. CASSIA [Concomitant]
     Indication: CONSTIPATION
     Dosage: ONGOING. WEEKDAYS.
     Route: 048
     Dates: start: 20180112
  6. CARBAMAZEPINE. [Concomitant]
     Active Substance: CARBAMAZEPINE
     Indication: TEMPORAL LOBE EPILEPSY
     Dosage: ONGOING
     Route: 048
     Dates: start: 20170602
  7. LAXIDO [Concomitant]
     Active Substance: POLYETHYLENE GLYCOL 3350\POTASSIUM CHLORIDE\SODIUM BICARBONATE\SODIUM CHLORIDE
     Indication: CONSTIPATION
     Dosage: ONGOING
     Route: 048
     Dates: start: 20170607

REACTIONS (2)
  - Convulsive threshold lowered [Recovered/Resolved]
  - Epilepsy [Recovered/Resolved]

NARRATIVE: CASE EVENT DATE: 20170811
